FAERS Safety Report 20957329 (Version 1)
Quarter: 2022Q2

REPORT INFORMATION
  Report Type: Spontaneous
  Country: FR (occurrence: FR)
  Receive Date: 20220614
  Receipt Date: 20220614
  Transmission Date: 20220721
  Serious: Yes (Other)
  Sender: FDA-Public Use
  Company Number: None

PATIENT
  Age: 80 Year
  Sex: Female
  Weight: 75 kg

DRUGS (2)
  1. CARBOPLATIN [Suspect]
     Active Substance: CARBOPLATIN
     Route: 042
     Dates: start: 20211119
  2. PEMETREXED [Suspect]
     Active Substance: PEMETREXED
     Dosage: 400 MG/M?
     Route: 042
     Dates: start: 20211119

REACTIONS (1)
  - Cyanosis [Unknown]

NARRATIVE: CASE EVENT DATE: 20211201
